FAERS Safety Report 9098339 (Version 1)
Quarter: 2013Q1

REPORT INFORMATION
  Report Type: Report from Study
  Country: DE (occurrence: DE)
  Receive Date: 20130213
  Receipt Date: 20130213
  Transmission Date: 20140127
  Serious: Yes (Hospitalization)
  Sender: FDA-Public Use
  Company Number: DE-ROCHE-1190370

PATIENT
  Sex: Female
  Weight: 64 kg

DRUGS (2)
  1. BEVACIZUMAB [Suspect]
     Indication: COLON CANCER METASTATIC
     Route: 042
     Dates: start: 20121031, end: 20121228
  2. ASS [Concomitant]
     Indication: HYPERTENSION
     Route: 048
     Dates: start: 20120424

REACTIONS (2)
  - Fall [Unknown]
  - Rib fracture [Recovered/Resolved]
